FAERS Safety Report 19778663 (Version 2)
Quarter: 2021Q4

REPORT INFORMATION
  Report Type: Spontaneous
  Country: JP (occurrence: JP)
  Receive Date: 20210902
  Receipt Date: 20211004
  Transmission Date: 20220303
  Serious: Yes (Death)
  Sender: FDA-Public Use
  Company Number: JP-CELGENE-JPN-20210900377

PATIENT
  Age: 44 Year
  Sex: Male

DRUGS (1)
  1. REVLIMID [Suspect]
     Active Substance: LENALIDOMIDE
     Indication: Plasmablastic lymphoma
     Dosage: UNKNOWN
     Route: 048

REACTIONS (1)
  - Plasmablastic lymphoma [Fatal]

NARRATIVE: CASE EVENT DATE: 20210101
